FAERS Safety Report 6838600-1 (Version None)
Quarter: 2010Q3

REPORT INFORMATION
  Report Type: 
  Country: None (occurrence: None)
  Receive Date: 20100713
  Receipt Date: 20070616
  Transmission Date: 20110219
  Serious: Yes (Hospitalization, Other)
  Sender: FDA-Public Use
  Company Number: US-PFIZER INC-2007050485

PATIENT
  Sex: Female
  Weight: 90.909 kg

DRUGS (5)
  1. CHANTIX [Suspect]
     Indication: SMOKING CESSATION THERAPY
     Dosage: EVERY DAY
     Route: 048
     Dates: start: 20070401
  2. CARDIZEM [Concomitant]
     Route: 048
     Dates: end: 20070601
  3. FUROSEMIDE [Concomitant]
     Route: 048
  4. NEXIUM [Concomitant]
     Route: 048
  5. INSULIN [Concomitant]
     Indication: DIABETES MELLITUS

REACTIONS (3)
  - CORONARY ARTERY OCCLUSION [None]
  - DYSPEPSIA [None]
  - MYOCARDIAL INFARCTION [None]
